FAERS Safety Report 7314856-6 (Version None)
Quarter: 2011Q1

REPORT INFORMATION
  Report Type: 
  Country: None (occurrence: None)
  Receive Date: 20110225
  Receipt Date: 20100210
  Transmission Date: 20110831
  Serious: No
  Sender: FDA-Public Use
  Company Number: US-MYLANLABS-2010S1000323

PATIENT
  Age: 14 Year
  Sex: Female
  Weight: 52.16 kg

DRUGS (4)
  1. SOTRET [Suspect]
     Indication: ACNE
  2. AMNESTEEM [Suspect]
  3. CLARAVIS [Suspect]
     Indication: ACNE
  4. AMNESTEEM [Suspect]
     Indication: ACNE

REACTIONS (1)
  - ARTHRALGIA [None]
